FAERS Safety Report 8792073 (Version 9)
Quarter: 2013Q1

REPORT INFORMATION
  Report Type: Report from Study
  Country: US (occurrence: US)
  Receive Date: 20120918
  Receipt Date: 20130315
  Transmission Date: 20140127
  Serious: Yes (Death, Life-Threatening, Hospitalization, Other)
  Sender: FDA-Public Use
  Company Number: US-AMGEN-USACT2012057726

PATIENT
  Age: 58 Year
  Sex: Female
  Weight: 105 kg

DRUGS (10)
  1. PANITUMUMAB [Suspect]
     Indication: OVARIAN CANCER
     Dosage: 2.5 MG/KG, QWK
     Route: 042
     Dates: start: 20110902, end: 20120720
  2. GEMCITABINE [Concomitant]
     Dosage: UNK
     Dates: start: 20110902, end: 20120720
  3. LOVENOX [Concomitant]
     Indication: DEEP VEIN THROMBOSIS
     Dosage: UNK
     Dates: start: 20111219, end: 20120720
  4. ATENOLOL [Concomitant]
     Dosage: UNK UNK, QD
  5. LOMOTIL [Concomitant]
     Indication: DIARRHOEA
     Dosage: UNK UNK, PRN
     Route: 048
  6. ACETAMINOPHEN W/HYDROCODONE [Concomitant]
     Indication: PAIN
     Dosage: UNK UNK, PRN
     Route: 048
  7. CIMETIDINE [Concomitant]
     Indication: DYSPEPSIA
     Dosage: 400 MG, PRN
     Route: 048
  8. PROCHLORPERAZINE [Concomitant]
     Indication: NAUSEA
     Dosage: 10 MG, PRN
     Route: 048
  9. PROCHLORPERAZINE [Concomitant]
     Indication: VOMITING
  10. GABAPENTIN [Concomitant]
     Dosage: 300 MG, QHS
     Route: 048

REACTIONS (4)
  - Angiopathy [Not Recovered/Not Resolved]
  - Calciphylaxis [Not Recovered/Not Resolved]
  - Renal failure acute [Fatal]
  - Sepsis [Recovered/Resolved]
